FAERS Safety Report 20939288 (Version 1)
Quarter: 2022Q2

REPORT INFORMATION
  Report Type: Spontaneous
  Country: US (occurrence: None)
  Receive Date: 20220608
  Receipt Date: 20220608
  Transmission Date: 20220721
  Serious: Yes (Death)
  Sender: FDA-Public Use
  Company Number: None

PATIENT
  Age: 77 Year
  Sex: Female

DRUGS (2)
  1. AUSTEDO [Suspect]
     Active Substance: DEUTETRABENAZINE
     Indication: Diverticulum
     Dosage: FREQUENCY : AS DIRECTED;?
     Route: 048
     Dates: start: 20190923
  2. AUSTEDO [Suspect]
     Active Substance: DEUTETRABENAZINE
     Indication: Bipolar disorder

REACTIONS (1)
  - Death [None]

NARRATIVE: CASE EVENT DATE: 20220604
